FAERS Safety Report 4900625-0 (Version None)
Quarter: 2006Q1

REPORT INFORMATION
  Report Type: 
  Country: None (occurrence: None)
  Receive Date: 20060203
  Receipt Date: 20060123
  Transmission Date: 20060701
  Serious: Yes (Death, Other)
  Sender: FDA-Public Use
  Company Number: PL-BRISTOL-MYERS SQUIBB COMPANY-13257068

PATIENT
  Age: 7 Year
  Sex: Female

DRUGS (4)
  1. CISPLATIN [Suspect]
     Indication: HEPATIC NEOPLASM MALIGNANT
     Route: 036
  2. DOXORUBICIN [Suspect]
     Indication: HEPATIC NEOPLASM MALIGNANT
     Route: 036
  3. MITOMYCIN [Suspect]
     Indication: HEPATIC NEOPLASM MALIGNANT
     Route: 036
  4. LIPIODOL [Suspect]
     Indication: HEPATIC NEOPLASM MALIGNANT
     Route: 036

REACTIONS (9)
  - ACUTE RESPIRATORY DISTRESS SYNDROME [None]
  - ANAEMIA [None]
  - EPISTAXIS [None]
  - NEUTROPENIA [None]
  - PULMONARY EMBOLISM [None]
  - PYREXIA [None]
  - TACHYCARDIA [None]
  - THROMBOCYTOPENIA [None]
  - VOMITING [None]
